FAERS Safety Report 6495514-7 (Version None)
Quarter: 2009Q4

REPORT INFORMATION
  Report Type: 
  Country: None (occurrence: None)
  Receive Date: 20091214
  Receipt Date: 20090701
  Transmission Date: 20100525
  Serious: No
  Sender: FDA-Public Use
  Company Number: US-BRISTOL-MYERS SQUIBB COMPANY-14688253

PATIENT
  Age: 38 Year
  Sex: Male

DRUGS (11)
  1. ABILIFY [Suspect]
     Indication: DEPRESSION
     Dates: start: 20090422, end: 20090624
  2. ABILIFY [Suspect]
     Indication: ANXIETY
     Dates: start: 20090422, end: 20090624
  3. LEXAPRO [Suspect]
     Indication: DEPRESSION
     Dosage: 10MG TAB,10MG; 20MG (ONCE DAILY), 30MG (ONCE DAILY),TITRATED TO 40MG ONCE DAILY.
     Route: 048
     Dates: start: 20081001, end: 20090422
  4. LEXAPRO [Suspect]
     Indication: ANXIETY
     Dosage: 10MG TAB,10MG; 20MG (ONCE DAILY), 30MG (ONCE DAILY),TITRATED TO 40MG ONCE DAILY.
     Route: 048
     Dates: start: 20081001, end: 20090422
  5. TEGRETOL-XR [Concomitant]
  6. LOVAZA [Concomitant]
  7. LISINOPRIL [Concomitant]
  8. VYTORIN [Concomitant]
  9. VITAMIN D [Concomitant]
  10. ATENOLOL [Concomitant]
  11. TOPAMAX [Concomitant]

REACTIONS (7)
  - AGGRESSION [None]
  - AGITATION [None]
  - ANGER [None]
  - EJACULATION DELAYED [None]
  - MEMORY IMPAIRMENT [None]
  - OVERDOSE [None]
  - PRIAPISM [None]
